FAERS Safety Report 22077969 (Version 1)
Quarter: 2023Q1

REPORT INFORMATION
  Report Type: Report from Study
  Country: BE (occurrence: BE)
  Receive Date: 20230309
  Receipt Date: 20230309
  Transmission Date: 20230418
  Serious: Yes (Hospitalization)
  Sender: FDA-Public Use
  Company Number: BE-ARGENX-2023-ARGX-BE000670

PATIENT

DRUGS (15)
  1. EFGARTIGIMOD ALFA [Suspect]
     Active Substance: EFGARTIGIMOD ALFA
     Indication: Myasthenia gravis
     Dosage: 530 MG, 2/WEEK
     Route: 042
     Dates: start: 20221215
  2. AMLODIPINE BESYLATE\HYDROCHLOROTHIAZIDE\OLMESARTAN MEDOXOMIL [Concomitant]
     Active Substance: AMLODIPINE BESYLATE\HYDROCHLOROTHIAZIDE\OLMESARTAN MEDOXOMIL
     Indication: Hypertension
     Dosage: 40/5/12.5MG, DAILY
     Route: 048
     Dates: start: 2013
  3. SIMBRINZA [Concomitant]
     Active Substance: BRIMONIDINE TARTRATE\BRINZOLAMIDE
     Indication: Glaucoma
     Dosage: UNK, BID
     Dates: start: 20190903
  4. LUTOM 3 [Concomitant]
     Indication: Glaucoma
     Dosage: UNK, DAILY
     Route: 048
     Dates: start: 20190903
  5. MESTINON [Concomitant]
     Active Substance: PYRIDOSTIGMINE BROMIDE
     Indication: Myasthenia gravis
     Dosage: 60 MG, QID
     Route: 048
     Dates: start: 2014
  6. MEDROL [Concomitant]
     Active Substance: METHYLPREDNISOLONE
     Indication: Myasthenia gravis
     Dosage: 6 MG, DAILY
     Route: 048
     Dates: start: 202202
  7. REMERGON [Concomitant]
     Active Substance: MIRTAZAPINE
     Indication: Insomnia
     Dosage: 15 MG, DAILY
     Route: 048
     Dates: start: 2013
  8. REMERGON [Concomitant]
     Active Substance: MIRTAZAPINE
     Dosage: UNK
     Route: 042
     Dates: start: 20221129
  9. OMEPRAZOLE [Concomitant]
     Active Substance: OMEPRAZOLE
     Indication: Prophylaxis
     Dosage: 40 MG, DAILY
     Route: 048
     Dates: start: 2013
  10. LORMETAZEPAM [Concomitant]
     Active Substance: LORMETAZEPAM
     Indication: Insomnia
     Dosage: 2 MG, DAILY
     Route: 048
     Dates: start: 202107
  11. STEOVIT FORTE [Concomitant]
     Indication: Supplementation therapy
     Dosage: UNK, DAILY
     Route: 048
     Dates: start: 2019
  12. LEVOTHYROXINE [Concomitant]
     Active Substance: LEVOTHYROXINE
     Indication: Hypothyroidism
     Dosage: 100 UNK, DAILY
     Route: 048
     Dates: start: 1978
  13. CELLCEPT [Concomitant]
     Active Substance: MYCOPHENOLATE MOFETIL
     Indication: Myasthenia gravis
     Dosage: 500 MG, BID
     Route: 048
     Dates: start: 202202
  14. FOSFOMYCIN TROMETHAMINE [Concomitant]
     Active Substance: FOSFOMYCIN TROMETHAMINE
     Indication: Urinary tract infection
     Dosage: 3 G
     Route: 048
     Dates: start: 20230123, end: 20230123
  15. AZITHROMYCIN [Concomitant]
     Active Substance: AZITHROMYCIN
     Indication: Bronchitis
     Dosage: 250 MG, DAILY
     Route: 048
     Dates: start: 20230224, end: 20230227

REACTIONS (1)
  - Respiratory syncytial virus infection [Unknown]

NARRATIVE: CASE EVENT DATE: 20230227
